FAERS Safety Report 18261092 (Version 1)
Quarter: 2020Q3

REPORT INFORMATION
  Report Type: Spontaneous
  Country: ES (occurrence: ES)
  Receive Date: 20200914
  Receipt Date: 20200914
  Transmission Date: 20201103
  Serious: Yes (Other)
  Sender: FDA-Public Use
  Company Number: ES-TEVA-2020-ES-1826168

PATIENT
  Age: 73 Year
  Sex: Female
  Weight: 76 kg

DRUGS (7)
  1. SIMVASTATINA 20 MG 28 COMPRIMIDOS [Concomitant]
     Active Substance: SIMVASTATIN
  2. LEXATIN 1,5 MG CAPSULAS DURAS [Concomitant]
     Active Substance: BROMAZEPAM
  3. ADIRO 100 MG COMPRIMIDOS GASTRORRESISTENTES EFG, 30 COMPRIMIDOS (POLIP [Concomitant]
     Active Substance: ASPIRIN
  4. PARACETAMOL 1.000 MG 40 COMPRIMIDOS [Concomitant]
  5. OMEPRAZOL STADA 20 MG CAPSULAS DURAS GASTRORRESISTENTES EFG , 28 CAPSU [Concomitant]
  6. RYTMONORM 150 MG COMPRIMIDOS RECUBIERTOS, 60 COMPRIMIDOS [Concomitant]
  7. NAPROXENO [NAPROXEN] [Suspect]
     Active Substance: NAPROXEN
     Indication: ROTATOR CUFF SYNDROME
     Dosage: 500 MG
     Route: 048
     Dates: start: 20200812, end: 202008

REACTIONS (3)
  - Syncope [Unknown]
  - Urticaria [Unknown]
  - Chest discomfort [Unknown]

NARRATIVE: CASE EVENT DATE: 20200812
